FAERS Safety Report 5765712-6 (Version None)
Quarter: 2008Q2

REPORT INFORMATION
  Report Type: 
  Country: None (occurrence: None)
  Receive Date: 20080611
  Receipt Date: 20080603
  Transmission Date: 20081010
  Serious: Yes (Other)
  Sender: FDA-Public Use
  Company Number: PHHY2008BR10065

PATIENT
  Sex: Male

DRUGS (8)
  1. ENABLEX [Suspect]
     Dosage: 1 TABLET AT NIGHT, TOTAL 18 TABLETS
     Route: 048
  2. ANCORON [Concomitant]
     Indication: ARRHYTHMIA
     Dosage: 5 MG, 1 TABLET IN THE MORNING
     Route: 048
  3. HYDROCHLOROTHIAZIDE [Concomitant]
     Dosage: 1 TABLET IN THE MORNING
     Route: 048
  4. METFORMIN HYDROCHLORIDE [Concomitant]
     Dosage: 500 MG, QD
     Route: 048
  5. DAONIL [Concomitant]
     Dosage: 1 TABLET IN THE MORNING
     Route: 048
  6. AMLOVASC [Concomitant]
     Indication: CARDIAC DISORDER
     Dosage: 10 MG, 1 TABLET IN THE MORNING
     Route: 048
  7. ACETYLCYSTEINE [Concomitant]
     Indication: LUNG DISORDER
     Dosage: 600 MG, QD
  8. INSULIN [Concomitant]
     Indication: DIABETES MELLITUS
     Dosage: UNK
     Route: 048

REACTIONS (8)
  - CATARACT [None]
  - DRY MOUTH [None]
  - DYSPNOEA [None]
  - HEADACHE [None]
  - POLLAKIURIA [None]
  - PROSTATIC PAIN [None]
  - RENAL PAIN [None]
  - URINARY INCONTINENCE [None]
